FAERS Safety Report 4960510-5 (Version None)
Quarter: 2006Q1

REPORT INFORMATION
  Report Type: 
  Country: None (occurrence: None)
  Receive Date: 20060328
  Receipt Date: 20060314
  Transmission Date: 20060701
  Serious: Yes (Hospitalization, Other)
  Sender: FDA-Public Use
  Company Number: HQWYE495923MAR06

PATIENT

DRUGS (1)
  1. ADVIL [Suspect]
     Dosage: 750 MG/KG, ORAL
     Route: 048

REACTIONS (3)
  - DRUG TOXICITY [None]
  - GASTROINTESTINAL DISORDER [None]
  - OVERDOSE [None]
